FAERS Safety Report 5165193-X (Version None)
Quarter: 2006Q4

REPORT INFORMATION
  Report Type: 
  Country: None (occurrence: None)
  Receive Date: 20061124
  Receipt Date: 20061109
  Transmission Date: 20070319
  Serious: Yes (Other)
  Sender: FDA-Public Use
  Company Number: 2006140641

PATIENT
  Age: 67 Year
  Sex: Male

DRUGS (1)
  1. SUTENT [Suspect]
     Indication: METASTATIC RENAL CELL CARCINOMA
     Dosage: ORAL
     Route: 048
     Dates: start: 20060201

REACTIONS (3)
  - CANDIDIASIS [None]
  - MACROGLOSSIA [None]
  - STOMATITIS [None]
